FAERS Safety Report 17556115 (Version 1)
Quarter: 2020Q1

REPORT INFORMATION
  Report Type: Spontaneous
  Country: US (occurrence: US)
  Receive Date: 20200318
  Receipt Date: 20200318
  Transmission Date: 20200409
  Serious: Yes (Other)
  Sender: FDA-Public Use
  Company Number: None

PATIENT
  Sex: Female

DRUGS (7)
  1. AMLODIPINE [Concomitant]
     Active Substance: AMLODIPINE BESYLATE
  2. FORTEO [Suspect]
     Active Substance: TERIPARATIDE
     Indication: PRODUCT USED FOR UNKNOWN INDICATION
     Route: 058
     Dates: start: 20181207
  3. VITAMIN D [Concomitant]
     Active Substance: VITAMIN D NOS
  4. OXCOD/APAP [Concomitant]
  5. SOD CHLORIDE [Concomitant]
  6. METOCLOPRAM [Concomitant]
     Active Substance: METOCLOPRAMIDE
  7. TOLTERODINE [Concomitant]
     Active Substance: TOLTERODINE

REACTIONS (1)
  - Nasal cavity cancer [None]
